FAERS Safety Report 15460705 (Version 1)
Quarter: 2018Q4

REPORT INFORMATION
  Report Type: Report from Study
  Country: US (occurrence: US)
  Receive Date: 20181003
  Receipt Date: 20181003
  Transmission Date: 20190204
  Serious: Yes (Hospitalization, Other)
  Sender: FDA-Public Use
  Company Number: US-GILEAD-2018-0366192

PATIENT
  Age: 47 Year
  Sex: Female

DRUGS (5)
  1. AZTREONAM LYSINE [Suspect]
     Active Substance: AZTREONAM LYSINE
     Indication: CYSTIC FIBROSIS
     Dosage: 75 MG, UNK, 28 DAYS, 28 DAYS OFF
     Route: 055
     Dates: start: 20180207
  2. SYMDEKO [Concomitant]
     Active Substance: IVACAFTOR\TEZACAFTOR
  3. CIPROFLOXACIN. [Concomitant]
     Active Substance: CIPROFLOXACIN
  4. VENLAFAXINE [Concomitant]
     Active Substance: VENLAFAXINE HYDROCHLORIDE
  5. PULMOZYME [Concomitant]
     Active Substance: DORNASE ALFA

REACTIONS (3)
  - Dyspnoea [Unknown]
  - Fatigue [Unknown]
  - Aspergillus infection [Unknown]
